FAERS Safety Report 18446637 (Version 2)
Quarter: 2020Q4

REPORT INFORMATION
  Report Type: Spontaneous
  Country: UA (occurrence: UA)
  Receive Date: 20201030
  Receipt Date: 20201126
  Transmission Date: 20210114
  Serious: Yes (Hospitalization, Other)
  Sender: FDA-Public Use
  Company Number: UA-ASTRAZENECA-2020SF39877

PATIENT
  Age: 65 Year
  Sex: Female

DRUGS (12)
  1. METFORMIN [Concomitant]
     Active Substance: METFORMIN HYDROCHLORIDE
     Dosage: 2000.0MG UNKNOWN
  2. NYSTATIN. [Concomitant]
     Active Substance: NYSTATIN
  3. TRIPLIXAM [Concomitant]
     Active Substance: AMLODIPINE BESYLATE\INDAPAMIDE\PERINDOPRIL ARGININE
  4. DEXAMETHASONE. [Concomitant]
     Active Substance: DEXAMETHASONE
     Dosage: 10 DAYS
  5. CEFTRIAXONE. [Concomitant]
     Active Substance: CEFTRIAXONE
     Dosage: 4,0 I/V,
  6. MOXIFLOXACIN. [Concomitant]
     Active Substance: MOXIFLOXACIN
  7. VEROSPIRON [Concomitant]
     Active Substance: SPIRONOLACTONE
  8. RHEOSORBILACT [Concomitant]
  9. GENTAMICIN. [Concomitant]
     Active Substance: GENTAMICIN
  10. IBUPROFEN. [Concomitant]
     Active Substance: IBUPROFEN
  11. FORXIGA [Suspect]
     Active Substance: DAPAGLIFLOZIN
     Indication: TYPE 2 DIABETES MELLITUS
     Dosage: 10, UNKNOWN DOSE
     Route: 048
     Dates: start: 2014
  12. AZITHROMYCIN ANHYDROUS. [Concomitant]
     Active Substance: AZITHROMYCIN ANHYDROUS

REACTIONS (5)
  - Oxygen saturation decreased [Unknown]
  - COVID-19 pneumonia [Unknown]
  - Paraesthesia [Not Recovered/Not Resolved]
  - COVID-19 [Recovered/Resolved]
  - Blood glucose increased [Unknown]

NARRATIVE: CASE EVENT DATE: 20200906
